FAERS Safety Report 5959934-9 (Version None)
Quarter: 2008Q4

REPORT INFORMATION
  Report Type: 
  Country: None (occurrence: None)
  Receive Date: 20081119
  Receipt Date: 20081119
  Transmission Date: 20090506
  Serious: No
  Sender: FDA-Public Use
  Company Number: None

PATIENT
  Age: 68 Year
  Sex: Male
  Weight: 84 kg

DRUGS (15)
  1. INSULIN GARGINE [Suspect]
     Indication: TYPE 1 DIABETES MELLITUS
     Dosage: 5 UNITS SQ QHS
  2. INSULIN ASPART [Suspect]
     Dosage: 8/12/15 PRANDIOL AND SSI
  3. APAP TAB [Concomitant]
  4. AMLODIPINE [Concomitant]
  5. ASPIRIN [Concomitant]
  6. EZETIMIBE [Concomitant]
  7. FLUDROCORTISONE ACETATE [Concomitant]
  8. GANCICLOVIR [Concomitant]
  9. LANSOPRAZOLE [Concomitant]
  10. METOPROLOL TARTRATE [Concomitant]
  11. MYCOPHENOLATE MOFETIL [Concomitant]
  12. NYSTATIN [Concomitant]
  13. PREDNISONE TAB [Concomitant]
  14. TACRO [Concomitant]
  15. BACTRIM [Concomitant]

REACTIONS (2)
  - HEPATIC FAILURE [None]
  - VISION BLURRED [None]
